FAERS Safety Report 5158182-2 (Version None)
Quarter: 2006Q4

REPORT INFORMATION
  Report Type: 
  Country: None (occurrence: None)
  Receive Date: 20061120
  Receipt Date: 20061120
  Transmission Date: 20070319
  Serious: Yes (Other)
  Sender: FDA-Public Use
  Company Number: None

PATIENT
  Age: 88 Year
  Sex: Female
  Weight: 54 kg

DRUGS (1)
  1. TIGECYCLINE 50 MG WYETH [Suspect]
     Indication: PNEUMONIA
     Dosage: 50 MG IV Q 12 HRS
     Route: 042
     Dates: start: 20061102, end: 20061117

REACTIONS (1)
  - PHARMACEUTICAL PRODUCT COMPLAINT [None]
